FAERS Safety Report 15827152 (Version 1)
Quarter: 2019Q1

REPORT INFORMATION
  Report Type: Spontaneous
  Country: US (occurrence: US)
  Receive Date: 20190115
  Receipt Date: 20190115
  Transmission Date: 20190417
  Serious: Yes (Other)
  Sender: FDA-Public Use
  Company Number: US-AMGEN-USASP2019002526

PATIENT
  Age: 65 Year
  Sex: Female

DRUGS (7)
  1. PROLIA [Suspect]
     Active Substance: DENOSUMAB
     Indication: OSTEOPOROSIS POSTMENOPAUSAL
     Dosage: UNK
     Route: 065
  2. IBUPROFEN. [Concomitant]
     Active Substance: IBUPROFEN
  3. GABAPENTIN. [Concomitant]
     Active Substance: GABAPENTIN
     Indication: NEURALGIA
  4. TRAMADOL. [Concomitant]
     Active Substance: TRAMADOL
  5. CALCIUM [Concomitant]
     Active Substance: CALCIUM
  6. ALEVE [Concomitant]
     Active Substance: NAPROXEN SODIUM
  7. MEDROL [Concomitant]
     Active Substance: METHYLPREDNISOLONE
     Indication: BACK PAIN

REACTIONS (5)
  - Renal impairment [Unknown]
  - Road traffic accident [Unknown]
  - Pelvic fracture [Recovered/Resolved]
  - Multiple fractures [Recovered/Resolved]
  - Back pain [Unknown]

NARRATIVE: CASE EVENT DATE: 201807
